FAERS Safety Report 25595970 (Version 1)
Quarter: 2025Q3

REPORT INFORMATION
  Report Type: Spontaneous
  Country: CN (occurrence: CN)
  Receive Date: 20250723
  Receipt Date: 20250723
  Transmission Date: 20251021
  Serious: Yes (Other)
  Sender: MYLAN
  Company Number: CN-MYLANLABS-2025M1061146

PATIENT
  Age: 15 Year
  Sex: Female
  Weight: 50 kg

DRUGS (12)
  1. ZOLOFT [Suspect]
     Active Substance: SERTRALINE HYDROCHLORIDE
     Indication: Intentional self-injury
     Dosage: 42 DOSAGE FORM, QD
     Dates: start: 20250311, end: 20250311
  2. ZOLOFT [Suspect]
     Active Substance: SERTRALINE HYDROCHLORIDE
     Dosage: 42 DOSAGE FORM, QD
     Route: 048
     Dates: start: 20250311, end: 20250311
  3. ZOLOFT [Suspect]
     Active Substance: SERTRALINE HYDROCHLORIDE
     Dosage: 42 DOSAGE FORM, QD
     Route: 048
     Dates: start: 20250311, end: 20250311
  4. ZOLOFT [Suspect]
     Active Substance: SERTRALINE HYDROCHLORIDE
     Dosage: 42 DOSAGE FORM, QD
     Dates: start: 20250311, end: 20250311
  5. OXAZEPAM [Suspect]
     Active Substance: OXAZEPAM
     Indication: Intentional self-injury
     Dosage: 14 DOSAGE FORM, QD
     Dates: start: 20250311, end: 20250311
  6. OXAZEPAM [Suspect]
     Active Substance: OXAZEPAM
     Dosage: 14 DOSAGE FORM, QD
     Route: 048
     Dates: start: 20250311, end: 20250311
  7. OXAZEPAM [Suspect]
     Active Substance: OXAZEPAM
     Dosage: 14 DOSAGE FORM, QD
     Route: 048
     Dates: start: 20250311, end: 20250311
  8. OXAZEPAM [Suspect]
     Active Substance: OXAZEPAM
     Dosage: 14 DOSAGE FORM, QD
     Dates: start: 20250311, end: 20250311
  9. ARIPIPRAZOLE [Suspect]
     Active Substance: ARIPIPRAZOLE
     Indication: Intentional self-injury
     Dosage: 14 DOSAGE FORM, QD
     Dates: start: 20250311, end: 20250311
  10. ARIPIPRAZOLE [Suspect]
     Active Substance: ARIPIPRAZOLE
     Dosage: 14 DOSAGE FORM, QD
     Route: 048
     Dates: start: 20250311, end: 20250311
  11. ARIPIPRAZOLE [Suspect]
     Active Substance: ARIPIPRAZOLE
     Dosage: 14 DOSAGE FORM, QD
     Route: 048
     Dates: start: 20250311, end: 20250311
  12. ARIPIPRAZOLE [Suspect]
     Active Substance: ARIPIPRAZOLE
     Dosage: 14 DOSAGE FORM, QD
     Dates: start: 20250311, end: 20250311

REACTIONS (1)
  - Toxicity to various agents [Recovering/Resolving]

NARRATIVE: CASE EVENT DATE: 20250311
